FAERS Safety Report 5222076-4 (Version None)
Quarter: 2007Q1

REPORT INFORMATION
  Report Type: 
  Country: None (occurrence: None)
  Receive Date: 20070129
  Receipt Date: 20060516
  Transmission Date: 20070707
  Serious: No
  Sender: FDA-Public Use
  Company Number: FPI 061141

PATIENT
  Age: 75 Year
  Sex: Female

DRUGS (3)
  1. WELLBUTRIN [Suspect]
     Indication: ANXIETY
     Dosage: 175MG PER DAY
     Route: 048
     Dates: start: 20060322
  2. TOPROL-XL [Concomitant]
     Indication: HYPERTENSION
  3. LEXAPRO [Concomitant]
     Indication: ANXIETY
     Dates: start: 20060412

REACTIONS (6)
  - ANXIETY [None]
  - DRUG INEFFECTIVE [None]
  - FEAR [None]
  - FEELING ABNORMAL [None]
  - FEELING JITTERY [None]
  - NERVOUSNESS [None]
